FAERS Safety Report 22127540 (Version 1)
Quarter: 2023Q1

REPORT INFORMATION
  Report Type: Report from Study
  Country: SE (occurrence: SE)
  Receive Date: 20230323
  Receipt Date: 20230323
  Transmission Date: 20230418
  Serious: Yes (Hospitalization, Other)
  Sender: FDA-Public Use
  Company Number: SE-ABBVIE-4295132

PATIENT
  Sex: Female
  Weight: 53 kg

DRUGS (2)
  1. CARBIDOPA\LEVODOPA [Suspect]
     Active Substance: CARBIDOPA\LEVODOPA
     Indication: Parkinson^s disease
     Dosage: THERAPY DURATION: REMAINS AT 16H
     Route: 050
     Dates: start: 20190116
  2. CARBIDOPA\LEVODOPA [Suspect]
     Active Substance: CARBIDOPA\LEVODOPA
     Dosage: THERAPY DURATION: REMAINS AT 16H
     Route: 050
     Dates: start: 20190116

REACTIONS (9)
  - Abdominal wall abscess [Not Recovered/Not Resolved]
  - Pulmonary embolism [Recovering/Resolving]
  - Stoma site odour [Unknown]
  - Peritonitis [Not Recovered/Not Resolved]
  - Device dislocation [Recovered/Resolved]
  - Stoma site discharge [Unknown]
  - Embedded device [Not Recovered/Not Resolved]
  - Excessive granulation tissue [Unknown]
  - Arteriovenous fistula site complication [Recovered/Resolved]

NARRATIVE: CASE EVENT DATE: 20230101
